FAERS Safety Report 8612934-2 (Version None)
Quarter: 2012Q3

REPORT INFORMATION
  Report Type: 
  Country: None (occurrence: None)
  Receive Date: 20120822
  Receipt Date: 20120809
  Transmission Date: 20120928
  Serious: Yes (Other)
  Sender: FDA-Public Use
  Company Number: CHPA2012US017915

PATIENT
  Age: 88 Year
  Sex: Female

DRUGS (2)
  1. DRUG THERAPY NOS [Concomitant]
     Dosage: UNK, UNK
  2. GAS-X CHEWABLE TABLETS PEPPERMINT CREME [Suspect]
     Indication: FLATULENCE
     Dosage: UNK, UNK
     Route: 048
     Dates: end: 20120808

REACTIONS (1)
  - LUNG NEOPLASM MALIGNANT [None]
